FAERS Safety Report 17812343 (Version 1)
Quarter: 2020Q2

REPORT INFORMATION
  Report Type: Spontaneous
  Country: DE (occurrence: DE)
  Receive Date: 20200521
  Receipt Date: 20200521
  Transmission Date: 20200714
  Serious: Yes (Hospitalization, Other)
  Sender: FDA-Public Use
  Company Number: DE-PFIZER INC-2020199223

PATIENT
  Age: 20 Year
  Sex: Female
  Weight: 89 kg

DRUGS (1)
  1. CYTOTEC [Suspect]
     Active Substance: MISOPROSTOL
     Indication: LABOUR INDUCTION
     Dosage: 275 UG (1 X 25UG, 1 X 50UG, 2 X 100UG)
     Route: 048
     Dates: start: 20130325, end: 20130326

REACTIONS (4)
  - Premature separation of placenta [Recovered/Resolved]
  - Off label use [Unknown]
  - Vaginal haemorrhage [Unknown]
  - Product use in unapproved indication [Unknown]

NARRATIVE: CASE EVENT DATE: 20130326
